FAERS Safety Report 13764792 (Version 1)
Quarter: 2017Q3

REPORT INFORMATION
  Report Type: Spontaneous
  Country: US (occurrence: US)
  Receive Date: 20170718
  Receipt Date: 20170718
  Transmission Date: 20171127
  Serious: No
  Sender: FDA-Public Use
  Company Number: US-009507513-1707USA005587

PATIENT
  Age: 65 Year
  Sex: Male
  Weight: 68.04 kg

DRUGS (3)
  1. REMERON [Suspect]
     Active Substance: MIRTAZAPINE
     Dosage: 10 MG, UNK
     Route: 048
     Dates: start: 2007
  2. REMERON [Suspect]
     Active Substance: MIRTAZAPINE
     Dosage: 22.5 MG, UNK
     Route: 048
  3. REMERON [Suspect]
     Active Substance: MIRTAZAPINE
     Dosage: 30 MG, UNK
     Route: 048

REACTIONS (4)
  - Adverse event [Unknown]
  - Irritability [Unknown]
  - Blood sodium decreased [Unknown]
  - Feeling abnormal [Unknown]

NARRATIVE: CASE EVENT DATE: 201605
